FAERS Safety Report 5464739-1 (Version None)
Quarter: 2007Q3

REPORT INFORMATION
  Report Type: 
  Country: None (occurrence: None)
  Receive Date: 20070921
  Receipt Date: 20070911
  Transmission Date: 20080115
  Serious: Yes (Hospitalization)
  Sender: FDA-Public Use
  Company Number: DE-PFIZER INC-2007057104

PATIENT
  Sex: Male

DRUGS (9)
  1. SUTENT [Suspect]
     Indication: METASTATIC RENAL CELL CARCINOMA
     Route: 048
     Dates: start: 20070425, end: 20070617
  2. PANTOPRAZOLE SODIUM [Concomitant]
  3. MUSARIL [Concomitant]
  4. ANDROCUR [Concomitant]
  5. LACTULOSE [Concomitant]
  6. K.H.3 [Concomitant]
  7. MESTINON [Concomitant]
  8. EUTHYROX [Concomitant]
     Route: 048
  9. DIOVAN [Concomitant]

REACTIONS (1)
  - IMPAIRED HEALING [None]
